FAERS Safety Report 9430240 (Version 1)
Quarter: 2013Q3

REPORT INFORMATION
  Report Type: Spontaneous
  Country: NL (occurrence: NL)
  Receive Date: 20130730
  Receipt Date: 20130730
  Transmission Date: 20140515
  Serious: Yes (Hospitalization)
  Sender: FDA-Public Use
  Company Number: NL-TEVA-421412ISR

PATIENT
  Age: 47 Year
  Sex: Female
  Weight: 65 kg

DRUGS (6)
  1. OXALIPLATINE INFOPL CONC 5MG/ML [Suspect]
     Indication: COLON CANCER
     Dosage: THREE WEEKLY 225MG
     Route: 042
     Dates: start: 20130503
  2. CAPECITABINE TABLET FO 500MG [Interacting]
     Indication: COLON CANCER
     Dosage: 2DD 1650MG, DURING 2 WEEKS, AFTER WHICH 1 STOP WEEK.
     Route: 048
     Dates: start: 20130503
  3. LOPERAMIDE-OXIDE TABLET 1MG [Concomitant]
     Dosage: AS PRESCRIBED
     Route: 048
  4. ETHINYLESTRADIOL/LEVONORGESTREL DRAGEE 30/ 50UG [Concomitant]
     Route: 048
  5. HYPROMELLOSE OOGDRUPPELS  3MG/ML [Concomitant]
     Dosage: AS NEEDED 3-4DD
     Route: 047
  6. PERIO-AID MONDSPOELING [Concomitant]
     Dosage: 4DD
     Route: 048

REACTIONS (2)
  - Thrombocytopenia [Recovered/Resolved]
  - Drug interaction [Unknown]
